FAERS Safety Report 5687736-X (Version None)
Quarter: 2008Q1

REPORT INFORMATION
  Report Type: 
  Country: None (occurrence: None)
  Receive Date: 20080328
  Receipt Date: 20070530
  Transmission Date: 20080703
  Serious: No
  Sender: FDA-Public Use
  Company Number: US-BAYER-US-2006-032408

PATIENT
  Age: 32 Year
  Sex: Female
  Weight: 109 kg

DRUGS (5)
  1. MIRENA [Suspect]
     Indication: CONTRACEPTION
     Route: 015
     Dates: start: 20060810, end: 20060905
  2. ZOLOFT [Concomitant]
     Dosage: UNIT DOSE: 100 MG
  3. TRAZODONE HCL [Concomitant]
     Dosage: UNIT DOSE: 50 MG
  4. LEVOXYL [Concomitant]
  5. ALESSE [Concomitant]

REACTIONS (1)
  - INTRA-UTERINE CONTRACEPTIVE DEVICE EXPELLED [None]
